FAERS Safety Report 13801804 (Version 1)
Quarter: 2017Q3

REPORT INFORMATION
  Report Type: Spontaneous
  Country: FR (occurrence: FR)
  Receive Date: 20170727
  Receipt Date: 20170727
  Transmission Date: 20171127
  Serious: Yes (Hospitalization)
  Sender: FDA-Public Use
  Company Number: FR-ASTRAZENECA-2017SE74813

PATIENT
  Age: 675 Month
  Sex: Female

DRUGS (11)
  1. PARACETAMOL [Suspect]
     Active Substance: ACETAMINOPHEN
     Dosage: 1G THREE TIMES A DAY
     Route: 065
  2. SPECIALFOLDINE [Suspect]
     Active Substance: FOLIC ACID
     Dosage: 15 MG/WEEK
     Route: 048
     Dates: start: 201602
  3. LAROXYL [Suspect]
     Active Substance: AMITRIPTYLINE
     Indication: NEURALGIA
     Route: 048
     Dates: start: 20170705
  4. ELUDRIL [Suspect]
     Active Substance: CHLORHEXIDINE GLUCONATE\CHLOROBUTANOL
     Route: 048
  5. INNOHEP [Suspect]
     Active Substance: TINZAPARIN SODIUM
     Indication: VENOUS THROMBOSIS
     Dosage: 250 IU/KG TWICE A DAY
     Route: 058
     Dates: start: 20170705
  6. IBRANCE [Suspect]
     Active Substance: PALBOCICLIB
     Indication: BREAST CANCER FEMALE
     Dosage: 125MG/DAY DURING 21 DAYS, THEN STOP 7 DAYS
     Route: 048
     Dates: start: 20170612
  7. LAROXYL [Suspect]
     Active Substance: AMITRIPTYLINE
     Indication: NEURALGIA
     Dosage: 100 MG /DAY AT NIGHT
     Route: 048
     Dates: start: 201606, end: 20170702
  8. FASLODEX [Suspect]
     Active Substance: FULVESTRANT
     Indication: BREAST CANCER FEMALE
     Route: 030
     Dates: start: 201703
  9. METHOTREXATE. [Suspect]
     Active Substance: METHOTREXATE
     Indication: RHEUMATOID ARTHRITIS
     Dosage: 20 MG/WEEK
     Route: 048
     Dates: start: 201602, end: 20170703
  10. INNOHEP [Suspect]
     Active Substance: TINZAPARIN SODIUM
     Indication: VENOUS THROMBOSIS
     Dosage: 10000 IU ANTI-XA / 0.5ML
     Route: 058
     Dates: start: 201702, end: 20170703
  11. TOPALGIC (TRAMADOL HYDROCHLORIDE) [Suspect]
     Active Substance: TRAMADOL HYDROCHLORIDE
     Dosage: 100 MG, TWICE A DAY, MORNING AND EVENING
     Route: 065

REACTIONS (23)
  - Aphthous ulcer [Unknown]
  - Hydronephrosis [None]
  - Epistaxis [None]
  - Neuralgia [None]
  - Invasive ductal breast carcinoma [None]
  - Toxicity to various agents [None]
  - Weight decreased [Unknown]
  - Radiation injury [None]
  - Neoplasm recurrence [None]
  - Acute kidney injury [None]
  - Dehydration [None]
  - Pancytopenia [Unknown]
  - Vomiting [Unknown]
  - Rheumatoid arthritis [None]
  - Metastases to peritoneum [None]
  - Pleural effusion [None]
  - Bone lesion [None]
  - Hepatic lesion [None]
  - Pain in extremity [None]
  - Dysphagia [None]
  - Subclavian vein thrombosis [None]
  - Off label use [Unknown]
  - Aplasia [None]

NARRATIVE: CASE EVENT DATE: 201706
